FAERS Safety Report 17068056 (Version 3)
Quarter: 2020Q2

REPORT INFORMATION
  Report Type: Spontaneous
  Country: US (occurrence: US)
  Receive Date: 20191122
  Receipt Date: 20200519
  Transmission Date: 20200713
  Serious: Yes (Hospitalization, Other)
  Sender: FDA-Public Use
  Company Number: US-ACTELION-A-NJ2019-198594

PATIENT
  Sex: Male

DRUGS (1)
  1. TRACLEER [Suspect]
     Active Substance: BOSENTAN
     Indication: PRODUCT USED FOR UNKNOWN INDICATION
     Route: 048

REACTIONS (6)
  - Tracheostomy [Unknown]
  - Vascular access site haemorrhage [Unknown]
  - Hospitalisation [Unknown]
  - Abnormal faeces [Unknown]
  - Urine abnormality [Unknown]
  - Dependence on oxygen therapy [Not Recovered/Not Resolved]
